FAERS Safety Report 8033864-3 (Version None)
Quarter: 2012Q1

REPORT INFORMATION
  Report Type: 
  Country: None (occurrence: None)
  Receive Date: 20120110
  Receipt Date: 20120104
  Transmission Date: 20120608
  Serious: No
  Sender: FDA-Public Use
  Company Number: US-PFIZER INC-2012003167

PATIENT
  Sex: Female
  Weight: 58.957 kg

DRUGS (3)
  1. DEPO-PROVERA [Suspect]
     Indication: CONTRACEPTION
     Dosage: 1 IN 3 MONTHS
     Dates: start: 20090101, end: 20110909
  2. ANTIBIOTICS [Concomitant]
     Indication: EYE INFECTION
     Dosage: UNK
     Dates: start: 20111205, end: 20111210
  3. PLAN B ONE-STEP [Suspect]
     Indication: CONTRACEPTION
     Dosage: 1.5 MG, 1 IN 1X/DAY
     Route: 048
     Dates: start: 20111216, end: 20111216

REACTIONS (4)
  - INAPPROPRIATE SCHEDULE OF DRUG ADMINISTRATION [None]
  - POLLAKIURIA [None]
  - NIPPLE PAIN [None]
  - ABDOMINAL PAIN LOWER [None]
